FAERS Safety Report 9103178 (Version 1)
Quarter: 2013Q1

REPORT INFORMATION
  Report Type: Report from Study
  Country: US (occurrence: US)
  Receive Date: 20130219
  Receipt Date: 20130219
  Transmission Date: 20140127
  Serious: Yes (Other)
  Sender: FDA-Public Use
  Company Number: US-MILLENNIUM PHARMACEUTICALS, INC.-2013-01193

PATIENT
  Age: 75 Year
  Sex: Male
  Weight: 87 kg

DRUGS (7)
  1. VELCADE [Suspect]
     Indication: B-CELL LYMPHOMA
     Dosage: 1.6 MG/M2, CYCLIC
     Route: 040
     Dates: start: 20120802, end: 20130107
  2. OFATUMUMAB [Suspect]
     Indication: B-CELL LYMPHOMA
     Dosage: 300 MG, CYCLIC
     Route: 042
     Dates: start: 20120802, end: 20120901
  3. OFATUMUMAB [Suspect]
     Dosage: 1000 MG, CYCLIC
     Route: 042
     Dates: start: 20120902, end: 20130107
  4. BENDAMUSTINE [Suspect]
     Indication: B-CELL LYMPHOMA
     Dosage: 90 MG/M2, CYCLIC
     Route: 041
     Dates: start: 20120802, end: 20130107
  5. ASA [Concomitant]
     Indication: PRODUCT USED FOR UNKNOWN INDICATION
  6. CARDIAZEM                          /00489701/ [Concomitant]
     Indication: PRODUCT USED FOR UNKNOWN INDICATION
     Dosage: 240 MG, UNK
  7. INDERAL                            /00030001/ [Concomitant]
     Indication: PRODUCT USED FOR UNKNOWN INDICATION
     Dosage: 80 MG, UNK

REACTIONS (1)
  - Atrial fibrillation [Not Recovered/Not Resolved]
